FAERS Safety Report 6613403-1 (Version None)
Quarter: 2010Q1

REPORT INFORMATION
  Report Type: 
  Country: None (occurrence: None)
  Receive Date: 20100224
  Receipt Date: 20090911
  Transmission Date: 20100710
  Serious: No
  Sender: FDA-Public Use
  Company Number: 2009-00606

PATIENT
  Age: 42 Year
  Sex: Female
  Weight: 87.0906 kg

DRUGS (2)
  1. ZICAM COLD REMEDY NASAL GEL [Suspect]
     Dosage: SPORADIC; 2005 OR 2006
  2. BIRTH CONTROL [Concomitant]

REACTIONS (1)
  - ANOSMIA [None]
